FAERS Safety Report 8860918 (Version 1)
Quarter: 2012Q4

REPORT INFORMATION
  Report Type: 
  Country: US (occurrence: US)
  Receive Date: 20121025
  Receipt Date: 20121025
  Transmission Date: 20130627
  Serious: Yes (Other)
  Sender: FDA-Public Use
  Company Number: CHPA2012US021999

PATIENT
  Age: 11 Year
  Sex: Female

DRUGS (1)
  1. TRIAMINIC FEVER REDUCER PAIN RELIEVER [Suspect]
     Indication: MALAISE
     Dosage: 3 tsp every 6 hours
     Route: 048

REACTIONS (4)
  - Viral infection [Not Recovered/Not Resolved]
  - Malaise [Unknown]
  - Pyrexia [Unknown]
  - Off label use [Unknown]
